FAERS Safety Report 25640622 (Version 1)
Quarter: 2025Q3

REPORT INFORMATION
  Report Type: Spontaneous
  Country: GB (occurrence: GB)
  Receive Date: 20250804
  Receipt Date: 20250804
  Transmission Date: 20251020
  Serious: Yes (Other)
  Sender: TEVA
  Company Number: GB-ASTRAZENECA-202507GLO013293GB

PATIENT
  Age: 61 Year
  Sex: Male
  Weight: 90 kg

DRUGS (2)
  1. LISINOPRIL [Suspect]
     Active Substance: LISINOPRIL
     Indication: Product used for unknown indication
     Dosage: ONE TO BE TAKEN EACH DAY, LISINOPRIL DIHYDRATE, 1 DOSAGE FORMS DAILY
     Route: 048
     Dates: start: 20250620
  2. AMLODIPINE [Concomitant]
     Active Substance: AMLODIPINE BESYLATE
     Indication: Product used for unknown indication
     Dosage: UNK ONE DOSAGE FORM ONCE DAILY, 1 DOSAGE FORMS DAILY
     Dates: start: 20250703

REACTIONS (1)
  - Swollen tongue [Recovered/Resolved]

NARRATIVE: CASE EVENT DATE: 20250702
